FAERS Safety Report 5273153-3 (Version None)
Quarter: 2007Q1

REPORT INFORMATION
  Report Type: 
  Country: None (occurrence: None)
  Receive Date: 20070322
  Receipt Date: 20070314
  Transmission Date: 20070707
  Serious: Yes (Hospitalization)
  Sender: FDA-Public Use
  Company Number: FR-BOEHRINGER INGELHEIM PHARMACEUTICALS, INC.-2005-FF-00111FF

PATIENT
  Sex: Female
  Weight: 88 kg

DRUGS (3)
  1. VIRAMUNE [Suspect]
     Indication: HIV INFECTION
     Route: 048
     Dates: start: 20041211
  2. VIRAMUNE [Suspect]
     Route: 048
     Dates: end: 20040112
  3. COMBIVIR [Concomitant]
     Indication: HIV INFECTION
     Route: 048
     Dates: start: 20021201, end: 20040113

REACTIONS (5)
  - EYELID OEDEMA [None]
  - HEPATIC ENZYME INCREASED [None]
  - LYMPHADENITIS [None]
  - PRURITUS [None]
  - RASH MACULO-PAPULAR [None]
